FAERS Safety Report 7964983-5 (Version None)
Quarter: 2011Q4

REPORT INFORMATION
  Report Type: 
  Country: None (occurrence: None)
  Receive Date: 20111208
  Receipt Date: 20110620
  Transmission Date: 20120403
  Serious: Yes (Other)
  Sender: FDA-Public Use
  Company Number: US-BAYER-2011-053557

PATIENT
  Sex: Female

DRUGS (2)
  1. DROSPIRENONE AND ETHINYL ESTRADIOL [Suspect]
     Indication: PRODUCT USED FOR UNKNOWN INDICATION
     Dosage: UNK
     Dates: start: 20051201
  2. YASMIN [Suspect]
     Indication: PRODUCT USED FOR UNKNOWN INDICATION
     Dosage: UNK
     Dates: start: 20051201

REACTIONS (3)
  - GALLBLADDER INJURY [None]
  - PAIN [None]
  - INJURY [None]
